FAERS Safety Report 14580997 (Version 3)
Quarter: 2018Q3

REPORT INFORMATION
  Report Type: Spontaneous
  Country: US (occurrence: US)
  Receive Date: 20180228
  Receipt Date: 20180718
  Transmission Date: 20181010
  Serious: No
  Sender: FDA-Public Use
  Company Number: US-PFIZER INC-2017121050

PATIENT
  Age: 8 Year
  Sex: Female
  Weight: 22.68 kg

DRUGS (7)
  1. GENOTROPIN [Suspect]
     Active Substance: SOMATROPIN
     Indication: GROWTH HORMONE DEFICIENCY
     Dosage: UNK
     Dates: end: 2016
  2. GENOTROPIN [Suspect]
     Active Substance: SOMATROPIN
     Dosage: 0.8 MG, DAILY
     Route: 058
  3. GENOTROPIN [Suspect]
     Active Substance: SOMATROPIN
     Indication: SMALL FOR DATES BABY
     Dosage: 0.08 MG, ALTERNATE DAY (0.08 MG, THEN 0.09 MG, EVERY OTHER DAY)
     Dates: start: 20170301
  4. GENOTROPIN [Suspect]
     Active Substance: SOMATROPIN
     Dosage: UNK (0.8MG AND 0.9MG ALTERNATING DOSE BY INJECTION, 6 DAYS A WEEK)
     Dates: start: 2015, end: 20180324
  5. GENOTROPIN [Suspect]
     Active Substance: SOMATROPIN
     Dosage: UNK
  6. GENOTROPIN [Suspect]
     Active Substance: SOMATROPIN
     Dosage: 0.09 MG, ALTERNATE DAY (0.08 MG, THEN 0.09 MG, EVERY OTHER DAY)
     Dates: start: 20170301
  7. GENOTROPIN [Suspect]
     Active Substance: SOMATROPIN
     Dosage: UNK (0.8MG AND 0.9MG ALTERNATING DOSE BY INJECTION, 6 DAYS A WEEK)
     Dates: start: 2015, end: 20180324

REACTIONS (7)
  - Injection site rash [Unknown]
  - Device issue [Unknown]
  - Arthralgia [Recovered/Resolved]
  - Intentional product misuse [Unknown]
  - Drug dose omission [Unknown]
  - Burning sensation [Recovered/Resolved]
  - Injection site pain [Unknown]

NARRATIVE: CASE EVENT DATE: 20170314
